FAERS Safety Report 9325546 (Version 1)
Quarter: 2013Q2

REPORT INFORMATION
  Report Type: Spontaneous
  Country: US (occurrence: None)
  Receive Date: 20130531
  Receipt Date: 20130531
  Transmission Date: 20140414
  Serious: Yes (Disabling)
  Sender: FDA-Public Use
  Company Number: None

PATIENT
  Age: 28 Year
  Sex: Male
  Weight: 74.84 kg

DRUGS (2)
  1. CIPROFLOXACIN HYDROCHLORIDE [Suspect]
     Indication: PROSTATITIS
     Dosage: 1 PILL  TWICE A DAY  BY MOUTH
     Route: 048
     Dates: start: 20130423, end: 20130430
  2. CIPROFLOXACIN HYDROCHLORIDE [Suspect]
     Indication: PROSTATE INFECTION
     Dosage: 1 PILL  TWICE A DAY  BY MOUTH
     Route: 048
     Dates: start: 20130423, end: 20130430

REACTIONS (11)
  - Arthralgia [None]
  - Tendon disorder [None]
  - Discomfort [None]
  - Sensory disturbance [None]
  - Superficial vein prominence [None]
  - Sensory loss [None]
  - Abdominal pain upper [None]
  - Feeling abnormal [None]
  - Disturbance in attention [None]
  - Amnesia [None]
  - Dizziness [None]
